FAERS Safety Report 6215325-7 (Version None)
Quarter: 2009Q2

REPORT INFORMATION
  Report Type: 
  Country: None (occurrence: None)
  Receive Date: 20090604
  Receipt Date: 20090529
  Transmission Date: 20091009
  Serious: Yes (Other)
  Sender: FDA-Public Use
  Company Number: PHHY2009BR20055

PATIENT
  Sex: Male

DRUGS (3)
  1. GALVUS MET COMBIPACK [Suspect]
     Indication: TYPE 2 DIABETES MELLITUS
     Dosage: 850/50 MG BID
  2. HUMULIN R [Concomitant]
     Dosage: 30 UI IN THE MORNING AND 20 UI IN THE AFTERNOON
  3. HUMULIN R [Concomitant]
     Dosage: 40UI IN THE MORNING AND 30UI IN THE AFTERNOON

REACTIONS (4)
  - BLOOD GLUCOSE INCREASED [None]
  - DRUG INEFFECTIVE [None]
  - HYPERTENSION [None]
  - OEDEMA PERIPHERAL [None]
